FAERS Safety Report 15662298 (Version 3)
Quarter: 2018Q4

REPORT INFORMATION
  Report Type: Spontaneous
  Country: US (occurrence: US)
  Receive Date: 20181127
  Receipt Date: 20181224
  Transmission Date: 20190205
  Serious: Yes (Hospitalization)
  Sender: FDA-Public Use
  Company Number: US-PFIZER INC-2018488675

PATIENT
  Age: 90 Year
  Sex: Female

DRUGS (1)
  1. SUTENT [Suspect]
     Active Substance: SUNITINIB MALATE
     Indication: RENAL CANCER
     Dosage: 37.5 MG, CYCLIC (DAILY FOR 2 WEEKS AND ONE WEEK OFF)
     Route: 048
     Dates: start: 201811, end: 2018

REACTIONS (8)
  - Gastritis [Unknown]
  - Ascites [Unknown]
  - Oral mucosal blistering [Unknown]
  - Abdominal pain [Unknown]
  - Localised oedema [Unknown]
  - Abdominal distension [Unknown]
  - Increased appetite [Recovered/Resolved]
  - Abdominal pain upper [Unknown]

NARRATIVE: CASE EVENT DATE: 2018
